FAERS Safety Report 8049580-8 (Version None)
Quarter: 2012Q1

REPORT INFORMATION
  Report Type: 
  Country: None (occurrence: None)
  Receive Date: 20120117
  Receipt Date: 20120111
  Transmission Date: 20120608
  Serious: Yes (Other)
  Sender: FDA-Public Use
  Company Number: US-ROCHE-794063

PATIENT
  Sex: Male
  Weight: 93.07 kg

DRUGS (3)
  1. ACCUTANE [Suspect]
     Dates: start: 19990101, end: 20010101
  2. ACCUTANE [Suspect]
  3. ACCUTANE [Suspect]
     Indication: ACNE
     Route: 048
     Dates: start: 19960101, end: 19970101

REACTIONS (5)
  - IRRITABLE BOWEL SYNDROME [None]
  - INFLAMMATORY BOWEL DISEASE [None]
  - EMOTIONAL DISTRESS [None]
  - DEPRESSION [None]
  - ATTENTION DEFICIT/HYPERACTIVITY DISORDER [None]
